FAERS Safety Report 4794424-0 (Version None)
Quarter: 2005Q4

REPORT INFORMATION
  Report Type: 
  Country: None (occurrence: None)
  Receive Date: 20051011
  Receipt Date: 20051004
  Transmission Date: 20060501
  Serious: Yes (Hospitalization)
  Sender: FDA-Public Use
  Company Number: FR-ROCHE-419955

PATIENT
  Age: 65 Year
  Sex: Male
  Weight: 46 kg

DRUGS (5)
  1. CLONAZEPAM [Suspect]
     Indication: DRUG USE FOR UNKNOWN INDICATION
     Route: 048
     Dates: end: 20050802
  2. FORLAX [Suspect]
     Indication: DRUG USE FOR UNKNOWN INDICATION
     Route: 048
     Dates: start: 20050308, end: 20050802
  3. LIORESAL [Suspect]
     Indication: DRUG USE FOR UNKNOWN INDICATION
     Route: 048
     Dates: start: 20050609, end: 20050802
  4. SKENAN LP [Concomitant]
     Dosage: DOSAGE REGIMEN REPORTED AS ^1 CAPSULE BI^
     Route: 048
     Dates: start: 20050308, end: 20050802
  5. XANAX [Concomitant]
     Dosage: DOSAGE REGIMEN REPORTED AS 'TOTAL DOSE 0'
     Route: 048
     Dates: start: 20050609, end: 20050802

REACTIONS (3)
  - BILIARY DILATATION [None]
  - BLOOD ALKALINE PHOSPHATASE INCREASED [None]
  - GAMMA-GLUTAMYLTRANSFERASE INCREASED [None]
